FAERS Safety Report 8581356-5 (Version None)
Quarter: 2012Q3

REPORT INFORMATION
  Report Type: 
  Country: None (occurrence: None)
  Receive Date: 20120809
  Receipt Date: 20120803
  Transmission Date: 20120928
  Serious: Yes (Other)
  Sender: FDA-Public Use
  Company Number: US-AMGEN-USASP2012048812

PATIENT
  Sex: Male

DRUGS (1)
  1. EPOGEN [Suspect]
     Indication: DIALYSIS
     Dosage: 2000 IU, UNK
     Route: 042
     Dates: start: 20070101

REACTIONS (6)
  - MYASTHENIA GRAVIS [None]
  - MENINGIOMA BENIGN [None]
  - DEPRESSED MOOD [None]
  - MOBILITY DECREASED [None]
  - HAEMOGLOBIN DECREASED [None]
  - BLOOD IRON DECREASED [None]
